FAERS Safety Report 7948309-9 (Version None)
Quarter: 2011Q4

REPORT INFORMATION
  Report Type: 
  Country: None (occurrence: None)
  Receive Date: 20111125
  Receipt Date: 20111118
  Transmission Date: 20120403
  Serious: Yes (Other)
  Sender: FDA-Public Use
  Company Number: JPI-P-018359

PATIENT
  Age: 62 Year
  Sex: Male
  Weight: 112.4921 kg

DRUGS (1)
  1. XYREM [Suspect]
     Indication: CATAPLEXY
     Dosage: ORAL, 7 GM (3.5 GM, 2 IN 1 D), ORAL
     Route: 048
     Dates: start: 20021021

REACTIONS (2)
  - SPINAL COLUMN STENOSIS [None]
  - SPINAL FUSION SURGERY [None]
